FAERS Safety Report 8889123 (Version 1)
Quarter: 2012Q4

REPORT INFORMATION
  Report Type: Report from Study
  Country: US (occurrence: US)
  Receive Date: 20121106
  Receipt Date: 20121106
  Transmission Date: 20130627
  Serious: Yes (Hospitalization, Other)
  Sender: FDA-Public Use
  Company Number: US-ROCHE-1088532

PATIENT
  Age: 85 Year
  Sex: Female
  Weight: 55.84 kg

DRUGS (27)
  1. CAPECITABINE [Suspect]
     Indication: BREAST CANCER METASTATIC
     Dosage: off 7 days
     Route: 048
  2. CAPECITABINE [Suspect]
     Dosage: 7 days on, 7 days off
     Route: 048
     Dates: start: 20120530, end: 20120706
  3. CAPECITABINE [Suspect]
     Route: 065
     Dates: start: 20120720
  4. IMODIUM [Concomitant]
     Indication: DIARRHOEA
     Route: 048
  5. IMODIUM [Concomitant]
     Route: 065
  6. ZOMETA [Concomitant]
     Indication: OSTEOPOROSIS
     Route: 042
     Dates: start: 2007, end: 20120817
  7. ZOMETA [Concomitant]
     Route: 048
     Dates: start: 20110805, end: 20110916
  8. ZOMETA [Concomitant]
     Route: 048
     Dates: start: 20111104, end: 20111207
  9. ZOMETA [Concomitant]
     Route: 065
     Dates: start: 20110613, end: 20110726
  10. AMBIEN [Concomitant]
     Dosage: as required
     Route: 048
  11. AMLODIPINE [Concomitant]
     Dosage: daily
     Route: 048
  12. ATENOLOL [Concomitant]
     Dosage: daily
     Route: 048
  13. COLACE [Concomitant]
     Route: 065
  14. ARANESP [Concomitant]
     Route: 065
     Dates: start: 20110805, end: 20110916
  15. NAVELBINE [Concomitant]
     Dosage: d1 and d8 every 3 weeks
     Route: 065
     Dates: start: 20110729, end: 20110930
  16. TAXOL [Concomitant]
     Route: 065
     Dates: start: 20110613, end: 20110726
  17. CENTRUM SILVER [Concomitant]
     Dosage: 400 mcg-250 mcg chewable tablet
     Route: 065
  18. FASLODEX [Concomitant]
  19. ATIVAN [Concomitant]
  20. CRESTOR [Concomitant]
     Route: 065
  21. EMLA [Concomitant]
     Dosage: 2.5 percent - 2.5 percent
     Route: 061
  22. GLIPIZIDE [Concomitant]
     Route: 065
  23. METFORMIN [Concomitant]
     Route: 065
  24. MIRALAX [Concomitant]
     Route: 048
  25. ONDANSETRON [Concomitant]
     Dosage: oral soluble film
     Route: 048
  26. SENOKOT [Concomitant]
     Route: 065
  27. VITAMIN D3 [Concomitant]
     Route: 065

REACTIONS (11)
  - Dehydration [Recovered/Resolved]
  - Disease progression [Unknown]
  - Diarrhoea [Recovered/Resolved]
  - Rhinorrhoea [Recovered/Resolved]
  - Pain in extremity [Not Recovered/Not Resolved]
  - Blood test abnormal [Not Recovered/Not Resolved]
  - Nausea [Recovering/Resolving]
  - Tenderness [Recovered/Resolved]
  - Skin fissures [Recovered/Resolved]
  - Weight decreased [Not Recovered/Not Resolved]
  - Diarrhoea [Recovered/Resolved]
